FAERS Safety Report 15682576 (Version 15)
Quarter: 2020Q3

REPORT INFORMATION
  Report Type: Report from Study
  Country: US (occurrence: US)
  Receive Date: 20181203
  Receipt Date: 20200714
  Transmission Date: 20201102
  Serious: Yes (Death, Hospitalization, Congenital Anomaly, Other)
  Sender: FDA-Public Use
  Company Number: US-ACTELION-A-NJ2018-179695

PATIENT
  Age: 70 Year
  Sex: Female
  Weight: 68.6 kg

DRUGS (56)
  1. TRAZODONE [Concomitant]
     Active Substance: TRAZODONE HYDROCHLORIDE
     Dosage: 25 MG, QD
     Dates: start: 20200217
  2. MYCOPHENOLATE MOFETIL. [Suspect]
     Active Substance: MYCOPHENOLATE MOFETIL
     Dosage: 500 MG, BID
     Route: 065
     Dates: start: 20181008
  3. ACETAMINOPHEN. [Concomitant]
     Active Substance: ACETAMINOPHEN
     Dosage: 1300 MG, BID, Q8H , PRN (AS NEEDED)
  4. LORATADINE. [Concomitant]
     Active Substance: LORATADINE
     Dosage: UNK
     Dates: start: 20180922
  5. PIPERACILLIN AND TAZOBACTAM [Concomitant]
     Active Substance: PIPERACILLIN SODIUM\TAZOBACTAM SODIUM
     Dosage: UNK
     Dates: start: 202001
  6. VASOPRESSIN. [Concomitant]
     Active Substance: VASOPRESSIN
     Dosage: UNK
     Dates: start: 202001
  7. DAKINS FULL [Concomitant]
     Active Substance: SODIUM HYPOCHLORITE
     Dosage: UNK
     Dates: start: 202001
  8. HEPARIN [Concomitant]
     Active Substance: HEPARIN SODIUM
     Dosage: 5000 UNITS, Q12
     Dates: start: 20200204
  9. ALLOPURINOL. [Concomitant]
     Active Substance: ALLOPURINOL
     Dosage: 300 MG, QD
     Dates: start: 20111004
  10. TORSEMIDE. [Concomitant]
     Active Substance: TORSEMIDE
     Dosage: 80 MG
     Dates: start: 20180905
  11. OXYGEN. [Concomitant]
     Active Substance: OXYGEN
     Dosage: 8 L
     Dates: start: 2004
  12. MIDODRINE [Concomitant]
     Active Substance: MIDODRINE
     Dosage: 15 MG, BID
     Dates: start: 20200206
  13. LEVOFLOXACIN. [Concomitant]
     Active Substance: LEVOFLOXACIN
  14. PLASMALYTE [Concomitant]
     Active Substance: ELECTROLYTES NOS
     Dosage: 500 ML
  15. OPSUMIT [Suspect]
     Active Substance: MACITENTAN
     Indication: PULMONARY ARTERIAL HYPERTENSION
     Dosage: 10 MG, QD
     Route: 048
     Dates: start: 20180822, end: 20200318
  16. UPTRAVI [Suspect]
     Active Substance: SELEXIPAG
     Dosage: 1600 MCG, BID
     Route: 048
     Dates: end: 20200318
  17. MYCOPHENOLATE MOFETIL. [Suspect]
     Active Substance: MYCOPHENOLATE MOFETIL
     Indication: PRODUCT USED FOR UNKNOWN INDICATION
     Dosage: UNK
     Route: 065
     Dates: start: 20180922
  18. LEVOTHYROXINE. [Concomitant]
     Active Substance: LEVOTHYROXINE
     Dosage: UNK
     Dates: start: 20180922
  19. METFORMIN [Concomitant]
     Active Substance: METFORMIN HYDROCHLORIDE
     Dosage: UNK
     Dates: start: 20180922
  20. OMEPRAZOLE. [Concomitant]
     Active Substance: OMEPRAZOLE
     Dosage: 40 MG
     Dates: start: 20111004
  21. UPTRAVI [Suspect]
     Active Substance: SELEXIPAG
     Indication: PULMONARY ARTERIAL HYPERTENSION
     Dosage: 200 MCG, BID
     Route: 048
     Dates: start: 20180924
  22. ALLOPURINOL. [Concomitant]
     Active Substance: ALLOPURINOL
     Dosage: UNK
     Dates: start: 20180922
  23. CITALOPRAM [Concomitant]
     Active Substance: CITALOPRAM HYDROBROMIDE
     Dosage: UNK
     Dates: start: 20180922
  24. FLUTICASONE. [Concomitant]
     Active Substance: FLUTICASONE
     Dosage: UNK
     Dates: start: 20180922
  25. GABAPENTIN. [Concomitant]
     Active Substance: GABAPENTIN
     Dosage: 300 MG, QD
     Dates: start: 20180530
  26. AMLODIPINE [Concomitant]
     Active Substance: AMLODIPINE BESYLATE
     Dosage: UNK
     Dates: start: 20180922
  27. MIDODRINE [Concomitant]
     Active Substance: MIDODRINE
     Dosage: UNK
     Dates: start: 202001
  28. METOCLOPRAMIDE. [Concomitant]
     Active Substance: METOCLOPRAMIDE
     Dosage: UNK
     Dates: start: 20200205
  29. MORPHINE [Concomitant]
     Active Substance: MORPHINE
     Dosage: UNK
     Dates: start: 202001
  30. METOLAZONE. [Concomitant]
     Active Substance: METOLAZONE
     Dosage: 2.5 MG, QD
  31. POTASSIUM [Concomitant]
     Active Substance: POTASSIUM
     Dosage: UNK
  32. CILOSTAZOL. [Concomitant]
     Active Substance: CILOSTAZOL
     Dosage: UNK
     Dates: start: 20200309
  33. UPTRAVI [Suspect]
     Active Substance: SELEXIPAG
     Dosage: 1200 MCG, BID
     Route: 048
  34. ASPRIN [Concomitant]
     Active Substance: ASPIRIN
     Dosage: UNK
     Dates: start: 20180922
  35. CHOLECALCIFEROL [Concomitant]
     Active Substance: CHOLECALCIFEROL
     Dosage: 1000 UNITS, QD
     Dates: start: 20180530
  36. LEVOTHYROXINE. [Concomitant]
     Active Substance: LEVOTHYROXINE
     Dosage: 50 MCG, QD
     Dates: start: 20180815
  37. TORSEMIDE. [Concomitant]
     Active Substance: TORSEMIDE
     Dosage: UNK
     Dates: start: 20180922
  38. SPIRONOLACTONE. [Concomitant]
     Active Substance: SPIRONOLACTONE
     Dosage: UNK
     Dates: start: 20180824
  39. FENTANYL. [Concomitant]
     Active Substance: FENTANYL
     Dosage: UNK
     Dates: start: 202001
  40. POTASSIUM [Concomitant]
     Active Substance: POTASSIUM
     Dosage: 20 MEQ/15 ML ORAL LIQUID, BID
     Dates: start: 20200309
  41. LANSOPRAZOLE. [Concomitant]
     Active Substance: LANSOPRAZOLE
     Dosage: 30 MG, QD
     Dates: start: 20200226
  42. CITALOPRAM [Concomitant]
     Active Substance: CITALOPRAM HYDROBROMIDE
     Dosage: 20 MG, QD
     Dates: start: 20111004
  43. GABAPENTIN. [Concomitant]
     Active Substance: GABAPENTIN
     Dosage: UNK
     Dates: start: 20180922
  44. SIMVASTATIN. [Concomitant]
     Active Substance: SIMVASTATIN
     Dosage: UNK
     Dates: start: 20180922
  45. ACETAMINOPHEN. [Concomitant]
     Active Substance: ACETAMINOPHEN
     Indication: PAIN
     Dosage: UNK
     Dates: start: 20180922
  46. ASPRIN [Concomitant]
     Active Substance: ASPIRIN
     Dosage: 81 MG, QD
     Dates: start: 20180815
  47. CHOLECALCIFEROL [Concomitant]
     Active Substance: CHOLECALCIFEROL
     Dosage: UNK
     Dates: start: 20180922
  48. FERROUS SULFATE. [Concomitant]
     Active Substance: FERROUS SULFATE
     Dosage: UNK
     Dates: start: 20180922
  49. FERROUS SULFATE. [Concomitant]
     Active Substance: FERROUS SULFATE
     Dosage: 650 MG, QD
     Dates: start: 20200205
  50. LORATADINE. [Concomitant]
     Active Substance: LORATADINE
     Dosage: 10 MG, QD
     Dates: start: 20111004
  51. OMEPRAZOLE. [Concomitant]
     Active Substance: OMEPRAZOLE
     Dosage: UNK
     Dates: start: 20180922
  52. SIMVASTATIN. [Concomitant]
     Active Substance: SIMVASTATIN
     Dosage: 20 MG, AT BEDTIME
     Dates: start: 20180530
  53. SILDENAFIL. [Concomitant]
     Active Substance: SILDENAFIL
     Dosage: 20 MG, QD
     Dates: start: 20180823
  54. VANCOMYCIN [Concomitant]
     Active Substance: VANCOMYCIN
     Dosage: UNK
     Dates: start: 202001
  55. ZOFRAN [Concomitant]
     Active Substance: ONDANSETRON HYDROCHLORIDE
  56. MELATONIN [Concomitant]
     Active Substance: MELATONIN
     Dosage: 9 MG, TID

REACTIONS (51)
  - Syncope [Recovered/Resolved]
  - Condition aggravated [Not Recovered/Not Resolved]
  - Loss of consciousness [Recovered/Resolved]
  - Malnutrition [Unknown]
  - Blood albumin decreased [Recovered/Resolved]
  - Creatinine renal clearance decreased [Recovered/Resolved]
  - Headache [Recovered/Resolved]
  - Gastrointestinal tube insertion [Unknown]
  - Pulmonary arterial hypertension [Not Recovered/Not Resolved]
  - Scleroderma [Unknown]
  - Blood urea increased [Recovered/Resolved]
  - Aspartate aminotransferase decreased [Unknown]
  - Blood bilirubin increased [Unknown]
  - Chest discomfort [Not Recovered/Not Resolved]
  - Decubitus ulcer [Unknown]
  - Hypotension [Recovered/Resolved]
  - Diarrhoea [Recovered/Resolved]
  - Tachycardia [Recovered/Resolved]
  - Blood alkaline phosphatase increased [Not Recovered/Not Resolved]
  - Osteonecrosis [Unknown]
  - Weight decreased [Not Recovered/Not Resolved]
  - Oedema [Recovered/Resolved]
  - Throat tightness [Not Recovered/Not Resolved]
  - Neck pain [Recovered/Resolved]
  - Pain [Not Recovered/Not Resolved]
  - Fatigue [Recovered/Resolved]
  - Hypovolaemic shock [Recovered/Resolved]
  - Urine output [Recovered/Resolved]
  - Discharge [Recovering/Resolving]
  - Fall [Recovered/Resolved]
  - Gastrointestinal arteriovenous malformation [Unknown]
  - Acute kidney injury [Recovered/Resolved]
  - Glomerular filtration rate decreased [Recovered/Resolved]
  - Localised infection [Recovering/Resolving]
  - Skin necrosis [Not Recovered/Not Resolved]
  - Dyspnoea [Unknown]
  - Fluid overload [Recovered/Resolved]
  - Oesophageal dilation procedure [Unknown]
  - Onychomadesis [Recovering/Resolving]
  - Chest pain [Unknown]
  - Asthenia [Not Recovered/Not Resolved]
  - Skin disorder [Not Recovered/Not Resolved]
  - Creatinine renal clearance increased [Recovered/Resolved]
  - Hypoalbuminaemia [Recovered/Resolved]
  - Presyncope [Unknown]
  - Decreased appetite [Not Recovered/Not Resolved]
  - Ascites [Recovered/Resolved]
  - Alanine aminotransferase decreased [Unknown]
  - Pain in extremity [Recovered/Resolved]
  - Back pain [Recovered/Resolved]
  - Death [Fatal]

NARRATIVE: CASE EVENT DATE: 201809
